FAERS Safety Report 9343452 (Version 1)
Quarter: 2013Q2

REPORT INFORMATION
  Report Type: Spontaneous
  Country: US (occurrence: US)
  Receive Date: 20130612
  Receipt Date: 20130612
  Transmission Date: 20140414
  Serious: No
  Sender: FDA-Public Use
  Company Number: US-BIOGENIDEC-2013BI050514

PATIENT
  Age: 62 Year
  Sex: Female

DRUGS (2)
  1. AVONEX [Suspect]
     Indication: MULTIPLE SCLEROSIS
     Route: 030
     Dates: start: 20101101
  2. TYLENOL [Concomitant]
     Indication: SPINAL PAIN

REACTIONS (3)
  - Contusion [Not Recovered/Not Resolved]
  - Injection site haemorrhage [Recovered/Resolved]
  - Influenza like illness [Recovered/Resolved]
